FAERS Safety Report 7302613-6 (Version None)
Quarter: 2011Q1

REPORT INFORMATION
  Report Type: 
  Country: None (occurrence: None)
  Receive Date: 20110218
  Receipt Date: 20110214
  Transmission Date: 20110831
  Serious: Yes (Death)
  Sender: FDA-Public Use
  Company Number: BR-ABBOTT-10P-020-0671921-00

PATIENT
  Sex: Female

DRUGS (4)
  1. UNKNOWN DRUG [Concomitant]
     Indication: PARKINSON'S DISEASE
  2. HUMIRA [Suspect]
     Indication: RHEUMATOID ARTHRITIS
     Route: 058
     Dates: start: 20100101, end: 20100701
  3. UNKNOWN DRUG [Concomitant]
  4. ATENOLOL AND CHLORTHALIDONE [Concomitant]
     Indication: HYPERTENSION

REACTIONS (1)
  - BRAIN NEOPLASM [None]
